FAERS Safety Report 21776312 (Version 1)
Quarter: 2022Q4

REPORT INFORMATION
  Report Type: Spontaneous
  Country: US (occurrence: US)
  Receive Date: 20221226
  Receipt Date: 20221226
  Transmission Date: 20230112
  Serious: No
  Sender: FDA-Public Use
  Company Number: US-MIGRATION_PFIZER-2022BHV002638

PATIENT
  Age: 57 Year
  Sex: Male

DRUGS (3)
  1. NURTEC ODT [Suspect]
     Active Substance: RIMEGEPANT SULFATE
     Indication: Migraine
     Dosage: TRIED IT FOR 2 WEEKS
     Route: 048
     Dates: start: 20220916
  2. NURTEC ODT [Suspect]
     Active Substance: RIMEGEPANT SULFATE
     Indication: Headache
  3. NURTEC ODT [Suspect]
     Active Substance: RIMEGEPANT SULFATE
     Indication: Prophylaxis

REACTIONS (3)
  - Off label use [Not Recovered/Not Resolved]
  - Medication error [Not Recovered/Not Resolved]
  - Drug ineffective [Not Recovered/Not Resolved]
